FAERS Safety Report 8328087-4 (Version None)
Quarter: 2012Q2

REPORT INFORMATION
  Report Type: 
  Country: None (occurrence: None)
  Receive Date: 20120502
  Receipt Date: 20120423
  Transmission Date: 20120825
  Serious: Yes (Other)
  Sender: FDA-Public Use
  Company Number: PHEH2011US07949

PATIENT
  Sex: Male

DRUGS (1)
  1. TASIGNA [Suspect]
     Indication: ACUTE LYMPHOCYTIC LEUKAEMIA
     Dosage: 300 MG, BID
     Route: 048
     Dates: start: 20111018

REACTIONS (6)
  - MYALGIA [None]
  - MUSCULOSKELETAL STIFFNESS [None]
  - DRY SKIN [None]
  - RASH [None]
  - PRURITUS [None]
  - GRAFT VERSUS HOST DISEASE [None]
